FAERS Safety Report 25546039 (Version 2)
Quarter: 2025Q4

REPORT INFORMATION
  Report Type: Spontaneous
  Country: US (occurrence: US)
  Receive Date: 20250712
  Receipt Date: 20251117
  Transmission Date: 20260117
  Serious: No
  Sender: IPSEN BIOPHARMACEUTICALS, INC.
  Company Number: US-IPSEN Group, Research and Development-2025-15847

PATIENT
  Age: 51 Year
  Sex: Female

DRUGS (3)
  1. IQIRVO [Suspect]
     Active Substance: ELAFIBRANOR
     Indication: Primary biliary cholangitis
     Route: 048
     Dates: start: 202505
  2. IMITREX [Concomitant]
     Active Substance: SUMATRIPTAN SUCCINATE
     Indication: Migraine
  3. UBRELVY [Concomitant]
     Active Substance: UBROGEPANT
     Indication: Migraine

REACTIONS (2)
  - Migraine [Unknown]
  - Back pain [Unknown]

NARRATIVE: CASE EVENT DATE: 20250101
